FAERS Safety Report 11391689 (Version 1)
Quarter: 2015Q3

REPORT INFORMATION
  Report Type: Spontaneous
  Country: US (occurrence: None)
  Receive Date: 20150814
  Receipt Date: 20150814
  Transmission Date: 20151125
  Serious: Yes (Disabling)
  Sender: FDA-Public Use
  Company Number: None

PATIENT
  Age: 34 Year
  Sex: Female

DRUGS (1)
  1. MIRENA [Suspect]
     Active Substance: LEVONORGESTREL
     Indication: UTERINE HAEMORRHAGE
     Route: 015
     Dates: start: 20140406, end: 20140616

REACTIONS (5)
  - Headache [None]
  - Medical device pain [None]
  - Arthralgia [None]
  - Antinuclear antibody positive [None]
  - Alopecia [None]

NARRATIVE: CASE EVENT DATE: 20140406
